FAERS Safety Report 18891657 (Version 1)
Quarter: 2021Q1

REPORT INFORMATION
  Report Type: Spontaneous
  Country: NL (occurrence: NL)
  Receive Date: 20210215
  Receipt Date: 20210215
  Transmission Date: 20210420
  Serious: Yes (Hospitalization)
  Sender: FDA-Public Use
  Company Number: NL-TEVA-2021-NL-1878788

PATIENT
  Age: 76 Year
  Sex: Female
  Weight: 85 kg

DRUGS (4)
  1. FLUOROURACIL INJECTIE/INFUUS / BRAND NAME NOT SPECIFIED [Suspect]
     Active Substance: FLUOROURACIL
     Indication: PANCREATIC CARCINOMA
     Dosage: I DO NOT KNOW, THERAPY END DATE : ASKED BUT UNKNOWN
     Dates: start: 20210112
  2. FOLINEZUUR INJVLST 10MG/ML / BRAND NAME NOT SPECIFIED [Suspect]
     Active Substance: LEUCOVORIN CALCIUM
     Indication: PANCREATIC CARCINOMA
     Dosage: I DO NOT KNOW , THERAPY END DATE : ASKED BUT UNKNOWN
     Dates: start: 20210112
  3. OXALIPLATINE INFUUS / BRAND NAME NOT SPECIFIED [Suspect]
     Active Substance: OXALIPLATIN
     Indication: PANCREATIC CARCINOMA
     Dosage: I DO NOT KNOW, THERAPY END DATE : ASKED BUT UNKNOWN
     Dates: start: 20210112
  4. IRINOTECAN INFUUS / BRAND NAME NOT SPECIFIED [Suspect]
     Active Substance: IRINOTECAN
     Indication: PANCREATIC CARCINOMA
     Dosage: I DO NOT KNOW, THERAPY END DATE : ASKED BUT UNKNOWN
     Dates: start: 20210112

REACTIONS (3)
  - Mucosal inflammation [Recovering/Resolving]
  - Vomiting [Recovering/Resolving]
  - Diarrhoea [Recovering/Resolving]

NARRATIVE: CASE EVENT DATE: 20210117
